FAERS Safety Report 23556270 (Version 1)
Quarter: 2024Q1

REPORT INFORMATION
  Report Type: Spontaneous
  Country: US (occurrence: US)
  Receive Date: 20240223
  Receipt Date: 20240223
  Transmission Date: 20240410
  Serious: Yes (Other)
  Sender: FDA-Public Use
  Company Number: US-NOVOPROD-1143297

PATIENT
  Age: 62 Year
  Sex: Female

DRUGS (3)
  1. NOVOLOG [Suspect]
     Active Substance: INSULIN ASPART
     Dosage: 140 IU, QD
     Route: 058
  2. NOVOLOG [Suspect]
     Active Substance: INSULIN ASPART
     Indication: Type 1 diabetes mellitus
     Dosage: 70 IU, QD
     Route: 058
  3. NOVOLOG [Suspect]
     Active Substance: INSULIN ASPART
     Dosage: UNK (OVERDOSE)
     Route: 058

REACTIONS (16)
  - Loss of consciousness [Recovered/Resolved]
  - Stress [Not Recovered/Not Resolved]
  - Memory impairment [Unknown]
  - Erythema [Unknown]
  - Impatience [Unknown]
  - Somnolence [Unknown]
  - Nasal congestion [Unknown]
  - Amylase decreased [Unknown]
  - Dyspnoea [Unknown]
  - Dry skin [Unknown]
  - Blood potassium decreased [Unknown]
  - Swelling [Not Recovered/Not Resolved]
  - Rash [Unknown]
  - Blood glucose decreased [Unknown]
  - Blood glucose increased [Recovered/Resolved]
  - Drug ineffective [Not Recovered/Not Resolved]

NARRATIVE: CASE EVENT DATE: 20150101
